FAERS Safety Report 12220530 (Version 1)
Quarter: 2016Q1

REPORT INFORMATION
  Report Type: Spontaneous
  Country: US (occurrence: US)
  Receive Date: 20160330
  Receipt Date: 20160330
  Transmission Date: 20160526
  Serious: No
  Sender: FDA-Public Use
  Company Number: US-MYLANLABS-2015M1032513

PATIENT
  Age: 41 Year
  Sex: Female

DRUGS (8)
  1. EMSAM [Suspect]
     Active Substance: SELEGILINE
     Indication: PANIC DISORDER
  2. SEROQUEL [Concomitant]
     Active Substance: QUETIAPINE FUMARATE
     Dosage: UNKNOWN
     Route: 065
  3. EMSAM [Suspect]
     Active Substance: SELEGILINE
     Indication: OFF LABEL USE
  4. EMSAM [Suspect]
     Active Substance: SELEGILINE
     Indication: ANXIETY
     Dosage: 9 MG, QD
     Route: 062
     Dates: start: 201508
  5. EMSAM [Suspect]
     Active Substance: SELEGILINE
     Indication: ANXIETY
     Dosage: 6 MG, QD
     Route: 062
     Dates: start: 201507, end: 201508
  6. EMSAM [Suspect]
     Active Substance: SELEGILINE
     Indication: PANIC DISORDER
  7. EMSAM [Suspect]
     Active Substance: SELEGILINE
     Indication: OFF LABEL USE
  8. ATIVAN [Concomitant]
     Active Substance: LORAZEPAM
     Dosage: UNKNOWN
     Route: 065

REACTIONS (3)
  - Application site pruritus [Not Recovered/Not Resolved]
  - Application site erythema [Not Recovered/Not Resolved]
  - Application site rash [Not Recovered/Not Resolved]

NARRATIVE: CASE EVENT DATE: 201507
